FAERS Safety Report 7699243-3 (Version None)
Quarter: 2011Q3

REPORT INFORMATION
  Report Type: 
  Country: None (occurrence: None)
  Receive Date: 20110819
  Receipt Date: 20110807
  Transmission Date: 20111222
  Serious: Yes (Other)
  Sender: FDA-Public Use
  Company Number: US-BAYER-2011-070142

PATIENT
  Sex: Female

DRUGS (2)
  1. MIRENA [Suspect]
     Indication: CONTRACEPTION
     Dosage: UNK
     Route: 015
     Dates: start: 20110601, end: 20110601
  2. MIRENA [Suspect]
     Dosage: UNK
     Route: 015
     Dates: start: 20110601

REACTIONS (3)
  - DEVICE DEPLOYMENT ISSUE [None]
  - ABDOMINAL PAIN [None]
  - VAGINAL HAEMORRHAGE [None]
